FAERS Safety Report 24090933 (Version 4)
Quarter: 2024Q3

REPORT INFORMATION
  Report Type: Spontaneous
  Country: CA (occurrence: CA)
  Receive Date: 20240715
  Receipt Date: 20240909
  Transmission Date: 20241016
  Serious: Yes (Other)
  Sender: PFIZER
  Company Number: CA-PFIZER INC-202400211075

PATIENT
  Age: 48 Year
  Sex: Male

DRUGS (3)
  1. ABRILADA [Suspect]
     Active Substance: ADALIMUMAB-AFZB
     Indication: Crohn^s disease
     Dosage: 1 DF WEEK 0 - 160 MG, WEEK 2 - 80 MG, THEN 40 MG EVERY OTHER WEEK STARTING WEEK 4
     Route: 058
     Dates: start: 20240414, end: 20240604
  2. PENTASA [Concomitant]
     Active Substance: MESALAMINE
     Dosage: 1 DF
  3. CIMZIA [Concomitant]
     Active Substance: CERTOLIZUMAB PEGOL
     Indication: Ankylosing spondylitis
     Dosage: 1 DF
     Dates: start: 2018

REACTIONS (4)
  - Nephrolithiasis [Unknown]
  - Oral herpes [Recovering/Resolving]
  - Constipation [Unknown]
  - Off label use [Unknown]

NARRATIVE: CASE EVENT DATE: 20240101
